FAERS Safety Report 7823605-4 (Version None)
Quarter: 2011Q4

REPORT INFORMATION
  Report Type: 
  Country: None (occurrence: None)
  Receive Date: 20111014
  Receipt Date: 20110930
  Transmission Date: 20120403
  Serious: Yes (Death, Other)
  Sender: FDA-Public Use
  Company Number: US-2011-10607

PATIENT
  Age: 26 Month
  Sex: Male

DRUGS (3)
  1. FLUDARBINE (FLUDARABINE PHOSPHATE) [Concomitant]
  2. BUSULFAN [Suspect]
     Indication: BONE MARROW TRANSPLANT
     Dosage: INTRAVENOUS
     Route: 042
  3. ALEMTUZUMAB (ALEMTUZUMAB) [Concomitant]

REACTIONS (12)
  - PULMONARY HYPERTENSION [None]
  - BONE MARROW TRANSPLANT REJECTION [None]
  - STEM CELL TRANSPLANT [None]
  - RESPIRATORY FAILURE [None]
  - STENOTROPHOMONAS INFECTION [None]
  - BONE MARROW TRANSPLANT [None]
  - BONE MARROW FAILURE [None]
  - TRANSPLANT REJECTION [None]
  - PULMONARY ALVEOLAR HAEMORRHAGE [None]
  - CELLULITIS [None]
  - DIFFUSE ALVEOLAR DAMAGE [None]
  - SURGICAL PROCEDURE REPEATED [None]
